FAERS Safety Report 25036573 (Version 2)
Quarter: 2025Q1

REPORT INFORMATION
  Report Type: Spontaneous
  Country: US (occurrence: None)
  Receive Date: 20250304
  Receipt Date: 20250306
  Transmission Date: 20250409
  Serious: Yes (Hospitalization, Other)
  Sender: INCYTE
  Company Number: US-INCYTE CORPORATION-2024IN013976

PATIENT
  Age: 64 Year
  Weight: 70.1 kg

DRUGS (6)
  1. JAKAFI [Suspect]
     Active Substance: RUXOLITINIB
     Indication: Chronic graft versus host disease
     Route: 065
  2. AXATILIMAB [Suspect]
     Active Substance: AXATILIMAB
     Indication: Chronic graft versus host disease
  3. AXATILIMAB [Suspect]
     Active Substance: AXATILIMAB
  4. REZUROCK [Concomitant]
     Active Substance: BELUMOSUDIL
     Indication: Chronic graft versus host disease
     Route: 065
  5. TYLENOL [Concomitant]
     Active Substance: ACETAMINOPHEN
     Indication: Premedication
  6. BENADRYL [Concomitant]
     Active Substance: DIPHENHYDRAMINE HYDROCHLORIDE
     Indication: Premedication

REACTIONS (12)
  - Abdominal pain [Recovered/Resolved]
  - Arteriosclerosis coronary artery [Unknown]
  - Immunosuppression [Unknown]
  - Pneumonitis aspiration [Unknown]
  - Graft versus host disease [Unknown]
  - Chronic graft versus host disease [Unknown]
  - Pyrexia [Recovered/Resolved]
  - Pneumonia [Recovering/Resolving]
  - Lung opacity [Recovered/Resolved]
  - Diverticulum intestinal [Unknown]
  - Myalgia [Unknown]
  - Drug intolerance [Unknown]
